FAERS Safety Report 10079838 (Version 1)
Quarter: 2014Q2

REPORT INFORMATION
  Report Type: Spontaneous
  Country: US (occurrence: US)
  Receive Date: 20140415
  Receipt Date: 20140415
  Transmission Date: 20141212
  Serious: Yes (Death, Other)
  Sender: FDA-Public Use
  Company Number: US-ABBVIE-14P-163-1225885-00

PATIENT
  Age: 58 Year
  Sex: Male

DRUGS (2)
  1. ANDROGEL [Suspect]
     Indication: BLOOD TESTOSTERONE DECREASED
     Route: 062
     Dates: start: 20111007, end: 201201
  2. AXIRON [Suspect]
     Indication: BLOOD TESTOSTERONE DECREASED
     Route: 062
     Dates: start: 20120402, end: 20120417

REACTIONS (5)
  - Myocardial infarction [Fatal]
  - Injury [Unknown]
  - Emotional distress [Unknown]
  - Pain [Unknown]
  - Economic problem [Unknown]
